FAERS Safety Report 7035875-3 (Version None)
Quarter: 2010Q4

REPORT INFORMATION
  Report Type: 
  Country: None (occurrence: None)
  Receive Date: 20101008
  Receipt Date: 20101004
  Transmission Date: 20110411
  Serious: Yes (Other)
  Sender: FDA-Public Use
  Company Number: CN-BAXTER-2010BH024893

PATIENT
  Sex: Male

DRUGS (5)
  1. CYCLOPHOSPHAMIDE [Suspect]
     Indication: STEM CELL TRANSPLANT
     Route: 041
  2. CYTARABINE [Suspect]
     Indication: STEM CELL TRANSPLANT
     Route: 041
  3. MYLERAN [Suspect]
     Indication: STEM CELL TRANSPLANT
     Route: 041
  4. METHYL-CYCLOHEXYL NITROSOUREA [Suspect]
     Indication: STEM CELL TRANSPLANT
     Route: 041
  5. ANTI-THYMOCYTE GLOBULIN NOS [Suspect]
     Indication: STEM CELL TRANSPLANT
     Route: 041

REACTIONS (1)
  - GRAFT VERSUS HOST DISEASE [None]
